FAERS Safety Report 6488868-9 (Version None)
Quarter: 2009Q4

REPORT INFORMATION
  Report Type: 
  Country: None (occurrence: None)
  Receive Date: 20091210
  Receipt Date: 20091130
  Transmission Date: 20100525
  Serious: Yes (Other)
  Sender: FDA-Public Use
  Company Number: GB-PFIZER INC-2009191437

PATIENT
  Age: 25 Year
  Sex: Male
  Weight: 88 kg

DRUGS (5)
  1. CHAMPIX [Suspect]
     Indication: SMOKING CESSATION THERAPY
     Dosage: 500 UG, UNK
     Route: 048
     Dates: start: 20090223, end: 20090301
  2. CITALOPRAM [Concomitant]
     Indication: ANXIETY
     Dosage: UNK
     Dates: start: 20081001
  3. CITALOPRAM [Concomitant]
     Indication: DEPRESSION
  4. DIAZEPAM [Concomitant]
  5. LOPERAMIDE [Concomitant]

REACTIONS (3)
  - DEPRESSED MOOD [None]
  - SUICIDAL IDEATION [None]
  - TEARFULNESS [None]
